FAERS Safety Report 18707662 (Version 3)
Quarter: 2021Q2

REPORT INFORMATION
  Report Type: Spontaneous
  Country: US (occurrence: US)
  Receive Date: 20210106
  Receipt Date: 20210408
  Transmission Date: 20210717
  Serious: No
  Sender: FDA-Public Use
  Company Number: US-PFIZER INC-2021000616

PATIENT
  Age: 46 Year
  Sex: Female

DRUGS (3)
  1. XELJANZ XR [Suspect]
     Active Substance: TOFACITINIB CITRATE
     Dosage: 11 MG
     Dates: start: 20201129
  2. XELJANZ XR [Suspect]
     Active Substance: TOFACITINIB CITRATE
     Dosage: 11 MG
     Dates: start: 20201214
  3. XELJANZ XR [Suspect]
     Active Substance: TOFACITINIB CITRATE
     Dosage: 11 MG
     Dates: start: 20201202

REACTIONS (10)
  - Hypervitaminosis B [Unknown]
  - Oropharyngeal pain [Recovered/Resolved]
  - Sensitivity to weather change [Unknown]
  - Blood iron increased [Unknown]
  - Laboratory test abnormal [Unknown]
  - Product dose omission in error [Unknown]
  - Condition aggravated [Unknown]
  - Sinus congestion [Unknown]
  - Nausea [Recovered/Resolved]
  - Liver function test increased [Unknown]
